FAERS Safety Report 15014820 (Version 1)
Quarter: 2018Q2

REPORT INFORMATION
  Report Type: Spontaneous
  Country: DE (occurrence: DE)
  Receive Date: 20180615
  Receipt Date: 20180615
  Transmission Date: 20180711
  Serious: Yes (Hospitalization)
  Sender: FDA-Public Use
  Company Number: DE-TEVA-2018-DE-908619

PATIENT
  Age: 72 Year
  Sex: Male
  Weight: 104 kg

DRUGS (9)
  1. ENALAPRIL [Concomitant]
     Active Substance: ENALAPRIL
     Dosage: 1-0-1-0
  2. DICLOFENAC [Suspect]
     Active Substance: DICLOFENAC
     Dosage: NK MG, NK
     Route: 065
  3. AMARYL [Concomitant]
     Active Substance: GLIMEPIRIDE
     Dosage: 1-0-0-0
  4. METOPROLOL. [Concomitant]
     Active Substance: METOPROLOL
     Dosage: , 1.5-0-1.5-0
  5. TOUJEO 300EINHEITEN/ML SOLOSTAR 1, 5ML PEN [Concomitant]
     Dosage: 0-0-0-1
  6. HYDROCHLOROTHIAZID [Concomitant]
     Active Substance: HYDROCHLOROTHIAZIDE
     Dosage: 0-1-0-0
  7. EBRANTIL [Concomitant]
     Active Substance: URAPIDIL
     Dosage: 1-0-1-0
  8. ACETYLSALICYLSAEURE [Suspect]
     Active Substance: ASPIRIN
     Dosage: NK
     Route: 065
  9. LERCANIDIPIN [Concomitant]
     Active Substance: LERCANIDIPINE
     Dosage: 0-1-0-0

REACTIONS (3)
  - Fatigue [Unknown]
  - Pallor [Unknown]
  - Haematochezia [Unknown]
